FAERS Safety Report 6829446-9 (Version None)
Quarter: 2010Q3

REPORT INFORMATION
  Report Type: 
  Country: None (occurrence: None)
  Receive Date: 20100709
  Receipt Date: 20070312
  Transmission Date: 20110219
  Serious: No
  Sender: FDA-Public Use
  Company Number: US-PFIZER INC-2007020035

PATIENT
  Sex: Female
  Weight: 47.17 kg

DRUGS (8)
  1. CHANTIX [Suspect]
     Indication: SMOKING CESSATION THERAPY
     Dates: start: 20070301
  2. BENADRYL [Suspect]
     Indication: PRURITUS
     Dates: start: 20070310
  3. HYDROCHLOROTHIAZIDE [Concomitant]
     Indication: HYPERTENSION
  4. ATENOLOL [Concomitant]
  5. NEURONTIN [Concomitant]
  6. LOVASTATIN [Concomitant]
  7. MULTI-VITAMINS [Concomitant]
  8. DUONEB [Concomitant]

REACTIONS (3)
  - ECZEMA [None]
  - HEADACHE [None]
  - PRURITUS [None]
